FAERS Safety Report 6943018-7 (Version None)
Quarter: 2010Q3

REPORT INFORMATION
  Report Type: 
  Country: None (occurrence: None)
  Receive Date: 20100825
  Receipt Date: 20100825
  Transmission Date: 20110219
  Serious: Yes (Hospitalization)
  Sender: FDA-Public Use
  Company Number: None

PATIENT
  Sex: Female
  Weight: 86.2 kg

DRUGS (1)
  1. TAXOL [Suspect]
     Dosage: 45 MG
     Dates: end: 20100215

REACTIONS (2)
  - NAUSEA [None]
  - VOMITING [None]
